FAERS Safety Report 8106289-X (Version None)
Quarter: 2012Q1

REPORT INFORMATION
  Report Type: 
  Country: None (occurrence: None)
  Receive Date: 20120130
  Receipt Date: 20120119
  Transmission Date: 20120608
  Serious: Yes (Hospitalization, Other)
  Sender: FDA-Public Use
  Company Number: AUR-APL-2012-00201

PATIENT
  Age: 74 Year
  Sex: Female
  Weight: 49.8957 kg

DRUGS (7)
  1. DILANTIN [Concomitant]
  2. PLAVIX [Concomitant]
  3. PHENOBARBITAL TAB [Concomitant]
  4. DILTIAZEM HCL [Concomitant]
  5. ISOSORBIDE DINITRATE [Concomitant]
  6. SIMVASTATIN [Concomitant]
  7. ALENDRONIC ACID (ALENDRONIC ACID) [Suspect]
     Indication: OSTEOPOROSIS
     Dosage: (70 MG, 1 WK), ORAL
     Route: 048
     Dates: start: 20110901, end: 20111226

REACTIONS (12)
  - ABASIA [None]
  - SENSATION OF HEAVINESS [None]
  - CONFUSIONAL STATE [None]
  - JOINT SWELLING [None]
  - ARTHRALGIA [None]
  - BLOOD POTASSIUM DECREASED [None]
  - HEART RATE INCREASED [None]
  - OEDEMA PERIPHERAL [None]
  - BONE PAIN [None]
  - MUSCLE TIGHTNESS [None]
  - MYALGIA [None]
  - GASTRIC HAEMORRHAGE [None]
